FAERS Safety Report 7982878-8 (Version None)
Quarter: 2011Q4

REPORT INFORMATION
  Report Type: 
  Country: None (occurrence: None)
  Receive Date: 20111215
  Receipt Date: 20111206
  Transmission Date: 20120403
  Serious: Yes (Hospitalization)
  Sender: FDA-Public Use
  Company Number: US-BAYER-2011-075018

PATIENT
  Age: 49 Year
  Sex: Female
  Weight: 72 kg

DRUGS (1)
  1. YASMIN [Suspect]
     Dosage: UNK
     Dates: start: 20090813, end: 20090818

REACTIONS (2)
  - THROMBOSIS [None]
  - INJURY [None]
